FAERS Safety Report 22695758 (Version 4)
Quarter: 2023Q4

REPORT INFORMATION
  Report Type: Spontaneous
  Country: US (occurrence: US)
  Receive Date: 20230712
  Receipt Date: 20231004
  Transmission Date: 20240110
  Serious: No
  Sender: FDA-Public Use
  Company Number: US-JNJFOC-20230707484

PATIENT
  Age: 17 Year
  Sex: Female

DRUGS (1)
  1. SIMPONI [Suspect]
     Active Substance: GOLIMUMAB
     Indication: Colitis ulcerative
     Dosage: 2 PENS AT WEEK ZERO, 1 PEN(100 MGS) AT WEEK 2 AND THEN 1 PEN EVERY 4 WEEKS THEREAFTER
     Route: 058

REACTIONS (7)
  - Device issue [Unknown]
  - Underdose [Unknown]
  - Inappropriate schedule of product administration [Unknown]
  - Off label use [Unknown]
  - Injury associated with device [Recovered/Resolved]
  - Accidental exposure to product [Unknown]
  - Needle issue [Unknown]

NARRATIVE: CASE EVENT DATE: 20230701
